FAERS Safety Report 6903415-2 (Version None)
Quarter: 2010Q3

REPORT INFORMATION
  Report Type: 
  Country: None (occurrence: None)
  Receive Date: 20100803
  Receipt Date: 20080927
  Transmission Date: 20110219
  Serious: No
  Sender: FDA-Public Use
  Company Number: US-PFIZER INC-2008069498

PATIENT
  Sex: Female
  Weight: 75.3 kg

DRUGS (4)
  1. LYRICA [Suspect]
     Indication: SPINAL COLUMN STENOSIS
     Dates: start: 20080808, end: 20080817
  2. LISINOPRIL [Concomitant]
  3. NEXIUM [Concomitant]
  4. PROPOXYPHENE HCL [Concomitant]

REACTIONS (2)
  - DRUG EFFECT DECREASED [None]
  - JOINT SWELLING [None]
